FAERS Safety Report 24293418 (Version 1)
Quarter: 2024Q3

REPORT INFORMATION
  Report Type: Spontaneous
  Country: US (occurrence: None)
  Receive Date: 20240906
  Receipt Date: 20240906
  Transmission Date: 20241017
  Serious: No
  Sender: DOMPE FARMACEUTICI
  Company Number: US-FARMAPROD-202401-0038

PATIENT
  Age: 82 Year
  Sex: Female
  Weight: 69.85 kg

DRUGS (25)
  1. OXERVATE [Suspect]
     Active Substance: CENEGERMIN-BKBJ
     Indication: Neurotrophic keratopathy
     Route: 047
     Dates: start: 20231220, end: 20240222
  2. OXERVATE [Suspect]
     Active Substance: CENEGERMIN-BKBJ
  3. OLOPATADINE HYDROCHLORIDE [Concomitant]
     Active Substance: OLOPATADINE HYDROCHLORIDE
  4. METFORMIN HYDROCHLORIDE [Concomitant]
     Active Substance: METFORMIN HYDROCHLORIDE
  5. ASPIRIN [Concomitant]
     Active Substance: ASPIRIN
  6. ALPHAGAN P [Concomitant]
     Active Substance: BRIMONIDINE TARTRATE
  7. TOLTERODINE TARTRATE [Concomitant]
     Active Substance: TOLTERODINE TARTRATE
     Dosage: 24 HOURS
  8. ALLOPURINOL [Concomitant]
     Active Substance: ALLOPURINOL
  9. OLMESARTAN [Concomitant]
     Active Substance: OLMESARTAN
  10. ESCITALOPRAM OXALATE [Concomitant]
     Active Substance: ESCITALOPRAM OXALATE
  11. RESTASIS [Concomitant]
     Active Substance: CYCLOSPORINE
  12. NITROFURANTOIN MONOHYDRATE MACROCRYSTALS [Concomitant]
     Active Substance: NITROFURANTOIN\NITROFURANTOIN MONOHYDRATE
  13. ATORVASTATIN CALCIUM [Concomitant]
     Active Substance: ATORVASTATIN CALCIUM
  14. TRULICITY [Concomitant]
     Active Substance: DULAGLUTIDE
     Dosage: 3MG/0.5ML PER INJECTOR
  15. CEPHALEXIN [Concomitant]
     Active Substance: CEPHALEXIN
  16. HYDROCHLOROTHIAZIDE [Concomitant]
     Active Substance: HYDROCHLOROTHIAZIDE
  17. GLIMEPIRIDE [Concomitant]
     Active Substance: GLIMEPIRIDE
  18. TIMOLOL MALEATE [Concomitant]
     Active Substance: TIMOLOL MALEATE
  19. ESTRADIOL [Concomitant]
     Active Substance: ESTRADIOL
  20. ALPRAZOLAM [Concomitant]
     Active Substance: ALPRAZOLAM
  21. LEVOTHYROXINE SODIUM [Concomitant]
     Active Substance: LEVOTHYROXINE SODIUM
  22. INDOMETHACIN [Concomitant]
     Active Substance: INDOMETHACIN
  23. PROTONIX [Concomitant]
     Active Substance: PANTOPRAZOLE SODIUM
  24. FARXIGA [Concomitant]
     Active Substance: DAPAGLIFLOZIN PROPANEDIOL
  25. METOPROLOL SUCCINATE [Concomitant]
     Active Substance: METOPROLOL SUCCINATE
     Dosage: 50MG/24H

REACTIONS (5)
  - Vision blurred [Not Recovered/Not Resolved]
  - Eye swelling [Not Recovered/Not Resolved]
  - Eye pain [Not Recovered/Not Resolved]
  - Arthralgia [Unknown]
  - Drug ineffective [Unknown]
